FAERS Safety Report 9579419 (Version 1)
Quarter: 2013Q4

REPORT INFORMATION
  Report Type: Spontaneous
  Country: US (occurrence: US)
  Receive Date: 20131001
  Receipt Date: 20131001
  Transmission Date: 20140711
  Serious: No
  Sender: FDA-Public Use
  Company Number: US-AMGEN-USASP2013029171

PATIENT
  Age: 58 Year
  Sex: Male
  Weight: 68 kg

DRUGS (7)
  1. PROCRIT [Suspect]
     Indication: HAEMOGLOBIN ABNORMAL
     Dosage: UNK UNK, QWK
     Dates: start: 20130412
  2. TELAPREVIR [Suspect]
     Indication: HEPATITIS C
     Dosage: 1125 MG, BID
     Dates: start: 201212
  3. PEGASYS [Suspect]
     Indication: HEPATITIS C
     Dosage: UNK
     Route: 058
     Dates: start: 201212
  4. RIBASPHERE [Suspect]
     Indication: HEPATITIS C
     Dosage: UNK
     Route: 048
     Dates: start: 201212
  5. PANTOPRAZOLE [Concomitant]
     Dosage: 1 DF, QD
     Route: 048
  6. DIOVAN [Concomitant]
     Dosage: 1 DF, QD
     Route: 048
  7. VITAMIN C                          /00008001/ [Concomitant]
     Dosage: 1 DF, QD
     Route: 048

REACTIONS (2)
  - Heart rate increased [Unknown]
  - Fatigue [Unknown]
